FAERS Safety Report 18345555 (Version 3)
Quarter: 2021Q3

REPORT INFORMATION
  Report Type: Spontaneous
  Country: US (occurrence: US)
  Receive Date: 20201005
  Receipt Date: 20210820
  Transmission Date: 20211014
  Serious: Yes (Other)
  Sender: FDA-Public Use
  Company Number: US-ASTRAZENECA-2020SF27287

PATIENT
  Age: 19528 Day
  Sex: Male
  Weight: 100.7 kg

DRUGS (55)
  1. SUBLIMAZE [Concomitant]
     Active Substance: FENTANYL CITRATE
  2. ANECTINE [Concomitant]
     Active Substance: SUCCINYLCHOLINE CHLORIDE
  3. ZEMURON [Concomitant]
     Active Substance: ROCURONIUM BROMIDE
  4. OLMESARTAN [Concomitant]
     Active Substance: OLMESARTAN
  5. PRAVASTATIN. [Concomitant]
     Active Substance: PRAVASTATIN
  6. LISINOPRIL. [Concomitant]
     Active Substance: LISINOPRIL
  7. VERSED [Concomitant]
     Active Substance: MIDAZOLAM HYDROCHLORIDE
  8. COLACE [Concomitant]
     Active Substance: DOCUSATE SODIUM
  9. MEPERIDINE [Concomitant]
     Active Substance: MEPERIDINE
  10. VISTARIL [Concomitant]
     Active Substance: HYDROXYZINE PAMOATE
  11. DIPRIVAN [Concomitant]
     Active Substance: PROPOFOL
  12. AMBIEN [Concomitant]
     Active Substance: ZOLPIDEM TARTRATE
  13. NORCO [Concomitant]
     Active Substance: ACETAMINOPHEN\HYDROCODONE BITARTRATE
  14. DEXTROSE. [Concomitant]
     Active Substance: DEXTROSE
  15. ZOSYN [Concomitant]
     Active Substance: PIPERACILLIN SODIUM\TAZOBACTAM SODIUM
  16. PRAVASTATIN. [Concomitant]
     Active Substance: PRAVASTATIN
  17. BENICAR [Concomitant]
     Active Substance: OLMESARTAN MEDOXOMIL
  18. FARXIGA [Suspect]
     Active Substance: DAPAGLIFLOZIN PROPANEDIOL
     Indication: TYPE 2 DIABETES MELLITUS
     Route: 048
     Dates: start: 20160409
  19. FARXIGA [Suspect]
     Active Substance: DAPAGLIFLOZIN PROPANEDIOL
     Indication: WEIGHT DECREASED
     Route: 048
     Dates: start: 20160409
  20. FARXIGA [Suspect]
     Active Substance: DAPAGLIFLOZIN PROPANEDIOL
     Indication: BLOOD PRESSURE DECREASED
     Route: 048
     Dates: start: 20160502
  21. NOVOLIN NOS [Concomitant]
     Active Substance: INSULIN HUMAN
  22. DICLOFENAC [Concomitant]
     Active Substance: DICLOFENAC
  23. DOXYCYCLINE. [Concomitant]
     Active Substance: DOXYCYCLINE
  24. NOVOLIN NOS [Concomitant]
     Active Substance: INSULIN HUMAN
  25. BACTRIM [Concomitant]
     Active Substance: SULFAMETHOXAZOLE\TRIMETHOPRIM
  26. FARXIGA [Suspect]
     Active Substance: DAPAGLIFLOZIN PROPANEDIOL
     Indication: BLOOD PRESSURE DECREASED
     Route: 048
     Dates: start: 20160409
  27. HYDROMORPHONE [Concomitant]
     Active Substance: HYDROMORPHONE
  28. ENOXAPARIN [Concomitant]
     Active Substance: ENOXAPARIN
  29. ASPIRIN. [Concomitant]
     Active Substance: ASPIRIN
  30. GLYBURIDE. [Concomitant]
     Active Substance: GLYBURIDE
  31. TIZANIDINE. [Concomitant]
     Active Substance: TIZANIDINE
  32. LOSARTAN. [Concomitant]
     Active Substance: LOSARTAN
  33. FARXIGA [Suspect]
     Active Substance: DAPAGLIFLOZIN PROPANEDIOL
     Indication: TYPE 2 DIABETES MELLITUS
     Route: 048
     Dates: start: 20160502
  34. VANCOCIN [Concomitant]
     Active Substance: VANCOMYCIN HYDROCHLORIDE
  35. LEVEMIR [Concomitant]
     Active Substance: INSULIN DETEMIR
  36. TYLENOL [Concomitant]
     Active Substance: ACETAMINOPHEN
  37. LIRAGLUTIDE [Concomitant]
     Active Substance: LIRAGLUTIDE
  38. PREDNISONE. [Concomitant]
     Active Substance: PREDNISONE
  39. TRULICITY [Concomitant]
     Active Substance: DULAGLUTIDE
  40. FARXIGA [Suspect]
     Active Substance: DAPAGLIFLOZIN PROPANEDIOL
     Indication: TYPE 2 DIABETES MELLITUS
     Route: 048
     Dates: start: 20160307, end: 20170720
  41. FARXIGA [Suspect]
     Active Substance: DAPAGLIFLOZIN PROPANEDIOL
     Indication: WEIGHT DECREASED
     Route: 048
     Dates: start: 20160307, end: 20170720
  42. ROCURONIUM [Concomitant]
     Active Substance: ROCURONIUM BROMIDE
  43. ZOFRAN [Concomitant]
     Active Substance: ONDANSETRON HYDROCHLORIDE
  44. GLUCAGON. [Concomitant]
     Active Substance: GLUCAGON
  45. METFORMIN [Concomitant]
     Active Substance: METFORMIN HYDROCHLORIDE
  46. CYCLOBENZAPRINE. [Concomitant]
     Active Substance: CYCLOBENZAPRINE
  47. FARXIGA [Suspect]
     Active Substance: DAPAGLIFLOZIN PROPANEDIOL
     Indication: BLOOD PRESSURE DECREASED
     Route: 048
     Dates: start: 20160307, end: 20170720
  48. FARXIGA [Suspect]
     Active Substance: DAPAGLIFLOZIN PROPANEDIOL
     Indication: WEIGHT DECREASED
     Route: 048
     Dates: start: 20160502
  49. XYLOCAINE [Concomitant]
     Active Substance: LIDOCAINE HYDROCHLORIDE
  50. NORMODYNE [Concomitant]
     Active Substance: LABETALOL HYDROCHLORIDE
  51. PROMETHAZINE [Concomitant]
     Active Substance: PROMETHAZINE HYDROCHLORIDE
  52. IBUPROFEN. [Concomitant]
     Active Substance: IBUPROFEN
  53. NAPROXEN. [Concomitant]
     Active Substance: NAPROXEN
  54. JANUVIA [Concomitant]
     Active Substance: SITAGLIPTIN PHOSPHATE
  55. ONDANSETRON [Concomitant]
     Active Substance: ONDANSETRON

REACTIONS (6)
  - Cellulitis of male external genital organ [Unknown]
  - Cellulitis [Unknown]
  - Fournier^s gangrene [Unknown]
  - Scrotal swelling [Unknown]
  - Scrotal abscess [Unknown]
  - Necrotising soft tissue infection [Unknown]

NARRATIVE: CASE EVENT DATE: 20170801
